FAERS Safety Report 13511920 (Version 1)
Quarter: 2017Q2

REPORT INFORMATION
  Report Type: Report from Study
  Country: CA (occurrence: CA)
  Receive Date: 20170504
  Receipt Date: 20170504
  Transmission Date: 20170830
  Serious: Yes (Other)
  Sender: FDA-Public Use
  Company Number: PHHY2017CA065169

PATIENT
  Sex: Female

DRUGS (1)
  1. GILENYA [Suspect]
     Active Substance: FINGOLIMOD HYDROCHLORIDE
     Indication: PRODUCT USED FOR UNKNOWN INDICATION
     Dosage: UNK
     Route: 048
     Dates: start: 20140512, end: 20150228

REACTIONS (3)
  - Lymphocyte count decreased [Unknown]
  - Bipolar disorder [Unknown]
  - Social avoidant behaviour [Unknown]

NARRATIVE: CASE EVENT DATE: 2015
